FAERS Safety Report 19132296 (Version 7)
Quarter: 2021Q2

REPORT INFORMATION
  Report Type: Report from Study
  Country: CH (occurrence: CH)
  Receive Date: 20210414
  Receipt Date: 20210630
  Transmission Date: 20210717
  Serious: Yes (Hospitalization)
  Sender: FDA-Public Use
  Company Number: CH-ROCHE-2806683

PATIENT
  Age: 78 Year
  Sex: Male
  Weight: 68.5 kg

DRUGS (15)
  1. PARACETAMOL [Concomitant]
     Active Substance: ACETAMINOPHEN
  2. TAMSULOSIN HYDROCHLORIDE. [Concomitant]
     Active Substance: TAMSULOSIN HYDROCHLORIDE
     Indication: PROPHYLAXIS
  3. EZETIMIBE. [Concomitant]
     Active Substance: EZETIMIBE
     Indication: PROPHYLAXIS
  4. CISPLATIN. [Suspect]
     Active Substance: CISPLATIN
     Dosage: ON 18/JAN/2021, HE RECEIVED LAST DOSE OF CISPLATIN (45.3 MG) PRIOR TO ONSET OF SERIOUS ADVERSE EVENT
     Route: 042
     Dates: start: 20210118
  5. CARBOPLATIN. [Suspect]
     Active Substance: CARBOPLATIN
     Indication: MALIGNANT NEOPLASM OF UNKNOWN PRIMARY SITE
     Dosage: ON 23/FEB/2021, HE RECEIVED LAST DOSE OF CARBOPLATIN (380 MG) PRIOR TO ONSET OF SERIOUS ADVERSE EVEN
     Route: 042
     Dates: start: 20210202
  6. ACETYLSALICYLIC ACID [Concomitant]
     Active Substance: ASPIRIN
     Indication: PROPHYLAXIS
  7. ATEZOLIZUMAB. [Suspect]
     Active Substance: ATEZOLIZUMAB
     Indication: MALIGNANT NEOPLASM OF UNKNOWN PRIMARY SITE
     Dosage: ON 19/MAR/2021, HE RECEIVED LAST DOSE OF ATEZOLIUZMAB (1200 MG) PRIOR TO ONSET OF SERIOUS ADVERSE EV
     Route: 041
     Dates: start: 20210319
  8. CISPLATIN. [Suspect]
     Active Substance: CISPLATIN
     Indication: MALIGNANT NEOPLASM OF UNKNOWN PRIMARY SITE
     Dosage: ON 15/DEC/2020, HE RECEIVED LAST DOSE OF CISPLATIN (44.8 MG) PRIOR TO ONSET OF SERIOUS ADVERSE EVENT
     Route: 042
     Dates: start: 20201215
  9. GEMCITABINE. [Suspect]
     Active Substance: GEMCITABINE
     Dosage: ON 19/MAR/2021, HE RECEIVED LAST DOSE OF GEMCITABINE (1846 MG) PRIOR TO ONSET OF SERIOUS ADVERSE EVE
     Route: 042
     Dates: start: 20210209
  10. TINZAPARIN [Concomitant]
     Active Substance: TINZAPARIN
     Indication: EMBOLISM
     Dosage: 12000
     Route: 030
     Dates: start: 20210331
  11. GEMCITABINE. [Suspect]
     Active Substance: GEMCITABINE
     Indication: MALIGNANT NEOPLASM OF UNKNOWN PRIMARY SITE
     Dosage: ON 15/DEC/2020, HE RECEIVED MOST RECENT DOSE OF GEMCITABINE (1794 MG) PRIOR TO ONSET OF SERIOUS ADVE
     Route: 042
     Dates: start: 20201215
  12. MACROGOL [Concomitant]
     Active Substance: POLYETHYLENE GLYCOLS
     Indication: PROPHYLAXIS
  13. APIXABAN [Concomitant]
     Active Substance: APIXABAN
     Indication: EMBOLISM
     Route: 048
     Dates: start: 20210504
  14. CO?AMOXICILLIN [Concomitant]
     Active Substance: AMOXICILLIN\CLAVULANATE POTASSIUM
     Indication: SKIN INFECTION
     Route: 048
     Dates: start: 20210325, end: 20210401
  15. PROSTAGUTT [Concomitant]
     Indication: PROPHYLAXIS

REACTIONS (1)
  - Arthritis [Recovered/Resolved]

NARRATIVE: CASE EVENT DATE: 20210405
